FAERS Safety Report 9808040 (Version 2)
Quarter: 2014Q1

REPORT INFORMATION
  Report Type: Spontaneous
  Country: US (occurrence: US)
  Receive Date: 20140110
  Receipt Date: 20140129
  Transmission Date: 20141002
  Serious: Yes (Death, Hospitalization)
  Sender: FDA-Public Use
  Company Number: US-GLAXOSMITHKLINE-A1055390A

PATIENT
  Age: 74 Year
  Sex: Male

DRUGS (6)
  1. ARIXTRA [Suspect]
     Indication: THROMBOSIS
     Dosage: 7.5MG PER DAY
     Route: 058
     Dates: start: 201301, end: 201311
  2. REGLAN [Concomitant]
  3. LASIX [Concomitant]
  4. PREDNISONE [Concomitant]
  5. CELEXA [Concomitant]
  6. REMERON [Concomitant]

REACTIONS (3)
  - Death [Fatal]
  - Thrombosis [Unknown]
  - Drug ineffective [Unknown]
